FAERS Safety Report 10163596 (Version 1)
Quarter: 2014Q2

REPORT INFORMATION
  Report Type: Spontaneous
  Country: US (occurrence: US)
  Receive Date: 20140509
  Receipt Date: 20140509
  Transmission Date: 20141212
  Serious: No
  Sender: FDA-Public Use
  Company Number: US-BAUSCH-BL-2013-003512

PATIENT
  Age: 64 Year
  Sex: Female

DRUGS (1)
  1. OFLOXACIN OTIC SOLUTION 0.3% [Suspect]
     Indication: EYE DISORDER
     Dosage: 1 DROP IN AFFECTED EYE(S); THREE TIMES DAILY; OPHTHALMIC
     Route: 047
     Dates: start: 201305, end: 201305

REACTIONS (3)
  - Drug dispensing error [Recovered/Resolved]
  - Incorrect route of drug administration [Recovered/Resolved]
  - Eye pain [Recovered/Resolved]
